FAERS Safety Report 5252946-2 (Version None)
Quarter: 2007Q1

REPORT INFORMATION
  Report Type: 
  Country: None (occurrence: None)
  Receive Date: 20070301
  Receipt Date: 20070220
  Transmission Date: 20070707
  Serious: Yes (Hospitalization)
  Sender: FDA-Public Use
  Company Number: 2007CG00321

PATIENT
  Sex: Female

DRUGS (5)
  1. NEXIUM [Suspect]
     Route: 048
     Dates: start: 20060801, end: 20061110
  2. NORSET [Suspect]
     Indication: DEPRESSION
     Dates: start: 20060801, end: 20061001
  3. OMEPRAZOLE [Concomitant]
     Route: 042
     Dates: start: 20060801, end: 20060801
  4. NEURONTIN [Concomitant]
     Indication: SCIATICA
  5. DOLIPRANE [Concomitant]
     Indication: SCIATICA

REACTIONS (1)
  - NEUTROPENIA [None]
